FAERS Safety Report 10213108 (Version 1)
Quarter: 2014Q2

REPORT INFORMATION
  Report Type: Spontaneous
  Country: FR (occurrence: FR)
  Receive Date: 20140603
  Receipt Date: 20140603
  Transmission Date: 20141212
  Serious: Yes (Hospitalization)
  Sender: FDA-Public Use
  Company Number: FR-ROCHE-1410888

PATIENT
  Age: 58 Year
  Sex: Male

DRUGS (3)
  1. ZELBORAF [Suspect]
     Indication: ADENOCARCINOMA
     Route: 048
     Dates: start: 20130905, end: 20140331
  2. AFINITOR [Concomitant]
     Route: 065
     Dates: start: 20140219
  3. AUGMENTIN [Concomitant]

REACTIONS (1)
  - Panniculitis [Recovering/Resolving]
